FAERS Safety Report 6718573-2 (Version None)
Quarter: 2010Q2

REPORT INFORMATION
  Report Type: 
  Country: None (occurrence: None)
  Receive Date: 20100504
  Receipt Date: 20100423
  Transmission Date: 20101027
  Serious: Yes (Other)
  Sender: FDA-Public Use
  Company Number: DSA_43046_2010

PATIENT
  Sex: Female

DRUGS (2)
  1. CARDIZEM LA [Suspect]
     Indication: DRUG USE FOR UNKNOWN INDICATION
     Dosage: (240 MG QD ORAL)
     Route: 048
     Dates: start: 19900101, end: 20100401
  2. XANAX [Concomitant]

REACTIONS (1)
  - GASTRIC CANCER [None]
